FAERS Safety Report 7423993-7 (Version None)
Quarter: 2011Q2

REPORT INFORMATION
  Report Type: 
  Country: None (occurrence: None)
  Receive Date: 20110419
  Receipt Date: 20100702
  Transmission Date: 20111010
  Serious: Yes (Hospitalization)
  Sender: FDA-Public Use
  Company Number: D0068158A

PATIENT
  Age: 43 Year

DRUGS (3)
  1. STALEVO 100 [Suspect]
     Route: 065
     Dates: start: 20100801, end: 20110301
  2. AZILECT [Suspect]
     Dosage: 1MG IN THE MORNING
     Route: 065
  3. REQUIP [Suspect]
     Dosage: 2MG TWICE PER DAY
     Route: 048

REACTIONS (5)
  - HEADACHE [None]
  - INAPPROPRIATE SCHEDULE OF DRUG ADMINISTRATION [None]
  - MUSCULOSKELETAL STIFFNESS [None]
  - PAIN IN EXTREMITY [None]
  - DIZZINESS [None]
